FAERS Safety Report 12642984 (Version 3)
Quarter: 2017Q1

REPORT INFORMATION
  Report Type: Spontaneous
  Country: US (occurrence: US)
  Receive Date: 20160811
  Receipt Date: 20170126
  Transmission Date: 20170428
  Serious: Yes (Death, Hospitalization, Other)
  Sender: FDA-Public Use
  Company Number: US-BRISTOL-MYERS SQUIBB COMPANY-BMS-2016-065162

PATIENT
  Sex: Male

DRUGS (1)
  1. OPDIVO [Suspect]
     Active Substance: NIVOLUMAB
     Indication: SMALL CELL LUNG CANCER
     Dosage: 253 MG, Q3WK
     Route: 042
     Dates: start: 20151116, end: 20160701

REACTIONS (5)
  - Pneumothorax [Unknown]
  - Pneumonitis [Fatal]
  - Thoracostomy [Unknown]
  - Respiratory failure [Unknown]
  - Off label use [Unknown]
